FAERS Safety Report 4561645-1 (Version None)
Quarter: 2005Q1

REPORT INFORMATION
  Report Type: 
  Country: None (occurrence: None)
  Receive Date: 20050126
  Receipt Date: 20050111
  Transmission Date: 20050727
  Serious: Yes (Hospitalization)
  Sender: FDA-Public Use
  Company Number: F01200400016

PATIENT
  Age: 61 Year
  Sex: Female

DRUGS (2)
  1. FONDAPARINUX SODIUM [Suspect]
     Indication: ORTHOPEDIC PROCEDURE
     Dosage: 2.5MG PER DAY
     Route: 058
     Dates: start: 20031124
  2. VIOXX [Concomitant]

REACTIONS (3)
  - POSTOPERATIVE INFECTION [None]
  - SUPERINFECTION [None]
  - WOUND SECRETION [None]
